FAERS Safety Report 5590838-X (Version None)
Quarter: 2008Q1

REPORT INFORMATION
  Report Type: 
  Country: None (occurrence: None)
  Receive Date: 20080110
  Receipt Date: 20080102
  Transmission Date: 20080703
  Serious: Yes (Life-Threatening)
  Sender: FDA-Public Use
  Company Number: VISP-PR-0801S-0004

PATIENT
  Age: 31 Year
  Sex: Male

DRUGS (6)
  1. VISIPAQUE [Suspect]
     Indication: BODY TEMPERATURE INCREASED
     Dosage: 120 ML, SINGLE DOSE, I.V.
     Route: 042
     Dates: start: 20071127, end: 20071127
  2. VISIPAQUE [Suspect]
     Indication: GASTROINTESTINAL HAEMORRHAGE
     Dosage: 120 ML, SINGLE DOSE, I.V.
     Route: 042
     Dates: start: 20071127, end: 20071127
  3. VISIPAQUE [Suspect]
     Indication: JAUNDICE
     Dosage: 120 ML, SINGLE DOSE, I.V.
     Route: 042
     Dates: start: 20071127, end: 20071127
  4. VISIPAQUE [Suspect]
     Indication: PAIN
     Dosage: 120 ML, SINGLE DOSE, I.V.
     Route: 042
     Dates: start: 20071127, end: 20071127
  5. VISIPAQUE [Suspect]
     Indication: POST PROCEDURAL BILE LEAK
     Dosage: 120 ML, SINGLE DOSE, I.V.
     Route: 042
     Dates: start: 20071127, end: 20071127
  6. VISIPAQUE [Suspect]
     Indication: PULMONARY EMBOLISM
     Dosage: 120 ML, SINGLE DOSE, I.V.
     Route: 042
     Dates: start: 20071127, end: 20071127

REACTIONS (2)
  - PULSE ABSENT [None]
  - RESPIRATORY ARREST [None]
